FAERS Safety Report 7011574-9 (Version None)
Quarter: 2010Q3

REPORT INFORMATION
  Report Type: 
  Country: None (occurrence: None)
  Receive Date: 20100923
  Receipt Date: 20090415
  Transmission Date: 20110219
  Serious: No
  Sender: FDA-Public Use
  Company Number: US-WYE-H08492209

PATIENT
  Sex: Female
  Weight: 63.56 kg

DRUGS (1)
  1. PREMARIN [Suspect]
     Indication: VULVOVAGINAL DRYNESS
     Dosage: 1 GM (FREQUENCY NOT SPECIFIED)
     Route: 067
     Dates: start: 20090227, end: 20090228

REACTIONS (5)
  - APPLICATION SITE IRRITATION [None]
  - APPLICATION SITE RASH [None]
  - BLADDER IRRITATION [None]
  - DYSURIA [None]
  - HYPERSENSITIVITY [None]
